FAERS Safety Report 9868393 (Version 1)
Quarter: 2014Q1

REPORT INFORMATION
  Report Type: Spontaneous
  Country: NL (occurrence: NL)
  Receive Date: 20140204
  Receipt Date: 20140204
  Transmission Date: 20141002
  Serious: Yes (Disabling)
  Sender: FDA-Public Use
  Company Number: NL-009507513-1401NLD014030

PATIENT
  Age: 64 Year
  Sex: Male

DRUGS (9)
  1. SIMVASTATIN [Suspect]
     Indication: CEREBROVASCULAR ACCIDENT
     Dosage: 40 MG, QD
     Route: 048
     Dates: start: 20121015, end: 20140120
  2. TAMSULOSIN HYDROCHLORIDE [Concomitant]
     Dosage: 0.4 MG, QD
  3. HYDROCHLOROTHIAZIDE [Concomitant]
     Dosage: 25 MG, QD
  4. CLOPIDOGREL BESYLATE [Concomitant]
     Dosage: 75 MG, QD
  5. VENLAFAXINE HYDROCHLORIDE [Concomitant]
     Dosage: 75 MG, QD
  6. VALSARTAN [Concomitant]
     Dosage: 80 MG, QD
  7. NIFEDIPINE [Concomitant]
     Dosage: 60 MG, QD
  8. BACLOFEN [Concomitant]
     Dosage: 10 MG, TID
  9. LISINOPRIL [Concomitant]
     Dosage: 5 MG, QD

REACTIONS (1)
  - Muscle rupture [Recovering/Resolving]
